FAERS Safety Report 22633035 (Version 4)
Quarter: 2023Q4

REPORT INFORMATION
  Report Type: Report from Study
  Country: US (occurrence: US)
  Receive Date: 20230623
  Receipt Date: 20231004
  Transmission Date: 20240109
  Serious: Yes (Hospitalization, Other)
  Sender: FDA-Public Use
  Company Number: US-ABBVIE-5301400

PATIENT
  Sex: Female

DRUGS (2)
  1. SKYRIZI [Suspect]
     Active Substance: RISANKIZUMAB-RZAA
     Indication: Crohn^s disease
     Dosage: 360MG/2.4ML?FORM STRENGTH 360 MILLIGRAM
     Route: 058
     Dates: start: 20230314
  2. SKYRIZI [Suspect]
     Active Substance: RISANKIZUMAB-RZAA
     Dosage: FORM STRENGTH: 360MG/2.4ML?FORM STRENGTH 360 MILLIGRAM
     Route: 058

REACTIONS (6)
  - Small intestinal obstruction [Unknown]
  - Crohn^s disease [Unknown]
  - Scar [Not Recovered/Not Resolved]
  - Anaemia postoperative [Unknown]
  - Bone density increased [Not Recovered/Not Resolved]
  - Post procedural haemorrhage [Unknown]

NARRATIVE: CASE EVENT DATE: 20230101
